FAERS Safety Report 8351008-5 (Version None)
Quarter: 2012Q2

REPORT INFORMATION
  Report Type: 
  Country: None (occurrence: None)
  Receive Date: 20120510
  Receipt Date: 20120504
  Transmission Date: 20120825
  Serious: Yes (Hospitalization, Other)
  Sender: FDA-Public Use
  Company Number: US-BAYER-2011-112361

PATIENT
  Age: 40 Year
  Sex: Female
  Weight: 50 kg

DRUGS (3)
  1. YASMIN [Suspect]
     Indication: CONTRACEPTION
  2. YASMIN [Suspect]
     Indication: PREMENSTRUAL SYNDROME
  3. YASMIN [Suspect]
     Indication: ACNE
     Dosage: UNK
     Dates: start: 20060331, end: 20060926

REACTIONS (3)
  - CHOLELITHIASIS [None]
  - CHOLECYSTITIS CHRONIC [None]
  - ABDOMINAL PAIN [None]
